FAERS Safety Report 14128743 (Version 1)
Quarter: 2017Q4

REPORT INFORMATION
  Report Type: Spontaneous
  Country: US (occurrence: None)
  Receive Date: 20171026
  Receipt Date: 20171026
  Transmission Date: 20180321
  Serious: No
  Sender: FDA-Public Use
  Company Number: None

PATIENT
  Age: 37 Year
  Sex: Female
  Weight: 54.43 kg

DRUGS (1)
  1. PARAGARD T 380A [Suspect]
     Active Substance: COPPER

REACTIONS (11)
  - Fluid retention [None]
  - Breast pain [None]
  - Asthenia [None]
  - Abdominal distension [None]
  - Loss of personal independence in daily activities [None]
  - Diffuse alopecia [None]
  - Constipation [None]
  - Frequent bowel movements [None]
  - Weight increased [None]
  - Menorrhagia [None]
  - Alopecia [None]

NARRATIVE: CASE EVENT DATE: 20150513
